FAERS Safety Report 24910908 (Version 1)
Quarter: 2025Q1

REPORT INFORMATION
  Report Type: Report from Study
  Country: US (occurrence: US)
  Receive Date: 20250131
  Receipt Date: 20250131
  Transmission Date: 20250409
  Serious: Yes (Hospitalization, Other)
  Sender: GILEAD
  Company Number: US-GILEAD-2025-0701453

PATIENT
  Age: 17 Year
  Sex: Female

DRUGS (18)
  1. AZTREONAM LYSINE [Suspect]
     Active Substance: AZTREONAM LYSINE
     Indication: Cystic fibrosis lung
     Dosage: 75 MG, TID (28 DAYS ON AND 28 DAYS OFF)
     Route: 055
     Dates: start: 20220930
  2. TACROLIMUS [Concomitant]
     Active Substance: TACROLIMUS
  3. VITAMIN E [Concomitant]
     Active Substance: .ALPHA.-TOCOPHEROL
  4. HEPARIN [Concomitant]
     Active Substance: HEPARIN SODIUM
  5. FLUTICASONE [Concomitant]
     Active Substance: FLUTICASONE
  6. CLOTRIMAZOLE [Concomitant]
     Active Substance: CLOTRIMAZOLE
  7. LEVALBUTEROL [Concomitant]
     Active Substance: LEVALBUTEROL
  8. PULMOZYME [Concomitant]
     Active Substance: DORNASE ALFA
  9. SODIUM CHLORIDE [Concomitant]
     Active Substance: SODIUM CHLORIDE
  10. CREON [Concomitant]
     Active Substance: PANCRELIPASE AMYLASE\PANCRELIPASE LIPASE\PANCRELIPASE PROTEASE
  11. COLACE [Concomitant]
     Active Substance: DOCUSATE SODIUM
  12. LANSOPRAZOLE [Concomitant]
     Active Substance: LANSOPRAZOLE
  13. CALCIUM [Concomitant]
     Active Substance: CALCIUM
  14. CETIRIZINE [Concomitant]
     Active Substance: CETIRIZINE HYDROCHLORIDE
  15. PHYTONADIONE [Concomitant]
     Active Substance: PHYTONADIONE
  16. SYMDEKO [Concomitant]
     Active Substance: IVACAFTOR\TEZACAFTOR
  17. SENOKOT [Concomitant]
     Active Substance: SENNOSIDES
  18. ALBUTEROL SULFATE [Concomitant]
     Active Substance: ALBUTEROL SULFATE

REACTIONS (2)
  - Cystic fibrosis respiratory infection suppression [Unknown]
  - Infective pulmonary exacerbation of cystic fibrosis [Unknown]
